FAERS Safety Report 4879670-X (Version None)
Quarter: 2006Q1

REPORT INFORMATION
  Report Type: 
  Country: None (occurrence: None)
  Receive Date: 20060113
  Receipt Date: 20060102
  Transmission Date: 20060701
  Serious: Yes (Hospitalization)
  Sender: FDA-Public Use
  Company Number: PHBS2006IR00473

PATIENT
  Age: 25 Year
  Sex: Female

DRUGS (2)
  1. CYCLOSPORINE [Suspect]
     Indication: RENAL TRANSPLANT
     Dosage: 200 MG/D
     Dates: start: 19960101
  2. PREDNISOLONE [Concomitant]
     Indication: RENAL TRANSPLANT
     Dosage: 5 MG/D

REACTIONS (13)
  - ABDOMINAL MASS [None]
  - ABDOMINAL PAIN LOWER [None]
  - BLOOD CREATININE INCREASED [None]
  - DRUG EXPOSURE DURING PREGNANCY [None]
  - HERPES SIMPLEX [None]
  - LEUKOCYTOSIS [None]
  - NAUSEA [None]
  - NORMAL NEWBORN [None]
  - PYREXIA [None]
  - SURGERY [None]
  - URINE OUTPUT DECREASED [None]
  - VASCULAR PSEUDOANEURYSM [None]
  - VOMITING [None]
